FAERS Safety Report 26215754 (Version 1)
Quarter: 2025Q4

REPORT INFORMATION
  Report Type: Spontaneous
  Country: US (occurrence: US)
  Receive Date: 20251231
  Receipt Date: 20251231
  Transmission Date: 20260118
  Serious: No
  Sender: ROCHE
  Company Number: US-ROCHE-10000468647

PATIENT
  Sex: Female

DRUGS (2)
  1. ACTEMRA [Suspect]
     Active Substance: TOCILIZUMAB
     Indication: Visual impairment
     Route: 058
     Dates: start: 202512
  2. PREDNISONE [Concomitant]
     Active Substance: PREDNISONE

REACTIONS (3)
  - Needle issue [Unknown]
  - Off label use [Unknown]
  - Device defective [Unknown]

NARRATIVE: CASE EVENT DATE: 20251201
